FAERS Safety Report 24804052 (Version 1)
Quarter: 2025Q1

REPORT INFORMATION
  Report Type: Spontaneous
  Country: US (occurrence: None)
  Receive Date: 20250102
  Receipt Date: 20250102
  Transmission Date: 20250409
  Serious: No
  Sender: FDA-CTU
  Company Number: None

PATIENT

DRUGS (1)
  1. ASENAPINE MALEATE [Suspect]
     Active Substance: ASENAPINE MALEATE
     Dosage: FREQUENCY : TWICE A DAY;?

REACTIONS (3)
  - Drug ineffective [None]
  - Product prescribing issue [None]
  - Insurance issue [None]

NARRATIVE: CASE EVENT DATE: 20250102
